FAERS Safety Report 10624545 (Version 1)
Quarter: 2014Q4

REPORT INFORMATION
  Report Type: Spontaneous
  Country: US (occurrence: US)
  Receive Date: 20141203
  Receipt Date: 20141203
  Transmission Date: 20150529
  Serious: No
  Sender: FDA-Public Use
  Company Number: US-GLAXOSMITHKLINE-US2014011253

PATIENT
  Age: 69 Year
  Sex: Female

DRUGS (6)
  1. ASPIRIN (BABY) [Concomitant]
  2. VITAMIN D [Concomitant]
     Active Substance: CHOLECALCIFEROL
  3. AMARYL [Concomitant]
     Active Substance: GLIMEPIRIDE
  4. MAGNESIUM [Concomitant]
     Active Substance: MAGNESIUM
  5. ZETIA [Concomitant]
     Active Substance: EZETIMIBE
  6. TANZEUM [Suspect]
     Active Substance: ALBIGLUTIDE
     Indication: TYPE 2 DIABETES MELLITUS
     Dosage: UNK UNK, WE
     Route: 058
     Dates: start: 20141017

REACTIONS (5)
  - Pollakiuria [Not Recovered/Not Resolved]
  - Wrong technique in drug usage process [Unknown]
  - Skin burning sensation [Not Recovered/Not Resolved]
  - Decreased appetite [Unknown]
  - Therapeutic response unexpected [Unknown]

NARRATIVE: CASE EVENT DATE: 20141017
